FAERS Safety Report 9103954 (Version 1)
Quarter: 2013Q1

REPORT INFORMATION
  Report Type: Report from Study
  Country: CA (occurrence: CA)
  Receive Date: 20130219
  Receipt Date: 20130219
  Transmission Date: 20140127
  Serious: Yes (Other)
  Sender: FDA-Public Use
  Company Number: CA-JNJFOC-20130110242

PATIENT
  Sex: Male
  Weight: 110 kg

DRUGS (6)
  1. REMICADE [Suspect]
     Indication: COLITIS ULCERATIVE
     Route: 042
     Dates: start: 20120712
  2. REMICADE [Suspect]
     Indication: COLITIS ULCERATIVE
     Dosage: 5TH INFUSION
     Route: 042
     Dates: start: 20130114
  3. SOLUCORTEF [Concomitant]
     Indication: PREMEDICATION
     Route: 042
     Dates: start: 20130114
  4. PREDNISONE [Concomitant]
     Route: 065
  5. PANTOPRAZOLE [Concomitant]
     Route: 065
  6. IRON PILLS [Concomitant]
     Route: 065

REACTIONS (3)
  - Haematochezia [Recovering/Resolving]
  - Asthenia [Recovering/Resolving]
  - Fatigue [Recovering/Resolving]
